FAERS Safety Report 7413269-6 (Version None)
Quarter: 2011Q2

REPORT INFORMATION
  Report Type: 
  Country: None (occurrence: None)
  Receive Date: 20110413
  Receipt Date: 20110408
  Transmission Date: 20111010
  Serious: Yes (Hospitalization)
  Sender: FDA-Public Use
  Company Number: FR-PFIZER INC-2011077897

PATIENT
  Age: 25 Year
  Sex: Male

DRUGS (6)
  1. VENTOLIN [Concomitant]
     Indication: ASTHMA
     Dosage: UNK
     Dates: end: 20100730
  2. RULID [Suspect]
     Indication: BRONCHITIS
     Dosage: UNK
     Route: 048
     Dates: start: 20100701, end: 20100730
  3. CEFPODOXIME PROXETIL [Suspect]
     Indication: BRONCHITIS
     Dosage: 100 MG, UNK
     Route: 048
     Dates: start: 20100701, end: 20100730
  4. PREDNISOLONE [Suspect]
     Indication: BRONCHITIS
     Dosage: UNK
     Route: 048
     Dates: start: 20100701, end: 20100730
  5. TOPLEXIL ^RHONE-POULENC^ [Suspect]
     Indication: BRONCHITIS
     Dosage: 0.33 MG, UNK
     Route: 048
     Dates: start: 20100701, end: 20100730
  6. SERETIDE [Concomitant]
     Dosage: UNK
     Dates: end: 20100730

REACTIONS (1)
  - PANCREATITIS ACUTE [None]
